FAERS Safety Report 6827890-7 (Version None)
Quarter: 2010Q3

REPORT INFORMATION
  Report Type: 
  Country: None (occurrence: None)
  Receive Date: 20100709
  Receipt Date: 20100623
  Transmission Date: 20110219
  Serious: Yes (Hospitalization)
  Sender: FDA-Public Use
  Company Number: A0863559A

PATIENT
  Sex: Male

DRUGS (8)
  1. AVANDIA [Suspect]
     Route: 048
     Dates: start: 20020101
  2. LISINOPRIL [Concomitant]
  3. METOPROLOL [Concomitant]
  4. CLONIDINE HCL [Concomitant]
  5. LIPITOR [Concomitant]
  6. GLYBURIDE [Concomitant]
  7. FELODIPINE [Concomitant]
  8. HUMULIN R [Concomitant]

REACTIONS (3)
  - CARDIAC FAILURE CONGESTIVE [None]
  - CHEST PAIN [None]
  - HEART RATE IRREGULAR [None]
